FAERS Safety Report 6329264-4 (Version None)
Quarter: 2009Q3

REPORT INFORMATION
  Report Type: 
  Country: None (occurrence: None)
  Receive Date: 20090826
  Receipt Date: 20090708
  Transmission Date: 20100115
  Serious: Yes (Hospitalization, Other)
  Sender: FDA-Public Use
  Company Number: US-PFIZER INC-2009247839

PATIENT
  Sex: Female
  Weight: 99.773 kg

DRUGS (4)
  1. CHANTIX [Suspect]
     Indication: SMOKING CESSATION THERAPY
     Route: 048
     Dates: start: 20090503, end: 20090518
  2. PAXIL [Interacting]
     Indication: ANXIETY
     Dosage: 30 MG, 1X/DAY
     Route: 048
  3. ACTOS [Concomitant]
     Indication: DIABETES MELLITUS
     Dosage: 15 MG, 1X/DAY
     Route: 048
     Dates: start: 20090428
  4. LYRICA [Concomitant]
     Indication: NEUROPATHY PERIPHERAL
     Dosage: 150 MG, UNK
     Route: 048
     Dates: start: 20090416

REACTIONS (14)
  - ANGER [None]
  - CONVULSION [None]
  - DECREASED APPETITE [None]
  - DEPRESSED MOOD [None]
  - DRUG INTERACTION [None]
  - FALL [None]
  - FEELING ABNORMAL [None]
  - GAIT DISTURBANCE [None]
  - INTENTIONAL DRUG MISUSE [None]
  - NAUSEA [None]
  - OEDEMA [None]
  - PERSONALITY CHANGE [None]
  - SUICIDE ATTEMPT [None]
  - TOOTH INJURY [None]
